FAERS Safety Report 21713565 (Version 1)
Quarter: 2022Q4

REPORT INFORMATION
  Report Type: Spontaneous
  Country: US (occurrence: US)
  Receive Date: 20221212
  Receipt Date: 20221212
  Transmission Date: 20230113
  Serious: Yes (Other)
  Sender: FDA-Public Use
  Company Number: US-AMERICAN REGENT INC-2022000198

PATIENT
  Sex: Female

DRUGS (3)
  1. VENOFER [Suspect]
     Active Substance: IRON SUCROSE
     Indication: Product used for unknown indication
     Dosage: UNK, PREVIOUS DOSES
     Route: 042
  2. VENOFER [Suspect]
     Active Substance: IRON SUCROSE
     Dosage: 200 MG, ADMINISTERED IN THE RIGHT ARM
     Route: 042
     Dates: start: 20211219, end: 20211219
  3. VENOFER [Suspect]
     Active Substance: IRON SUCROSE
     Dosage: UNK, ADMINISTERED IN THE LEFT ARM
     Route: 042
     Dates: start: 202112, end: 202112

REACTIONS (2)
  - Extravasation [Recovered/Resolved]
  - Infusion site discolouration [Not Recovered/Not Resolved]

NARRATIVE: CASE EVENT DATE: 20211219
